FAERS Safety Report 12172157 (Version 3)
Quarter: 2016Q2

REPORT INFORMATION
  Report Type: Report from Study
  Country: DE (occurrence: DE)
  Receive Date: 20160311
  Receipt Date: 20160512
  Transmission Date: 20160815
  Serious: Yes (Hospitalization)
  Sender: FDA-Public Use
  Company Number: DE-BIOGEN-2015BI139447

PATIENT
  Age: 36 Year
  Sex: Female

DRUGS (1)
  1. TECFIDERA [Suspect]
     Active Substance: DIMETHYL FUMARATE
     Indication: MULTIPLE SCLEROSIS
     Dosage: MAINTENANCE DOSE
     Route: 048
     Dates: start: 20140414

REACTIONS (8)
  - Peripheral swelling [Recovered/Resolved]
  - White blood cell count increased [Unknown]
  - Gait disturbance [Not Recovered/Not Resolved]
  - Abscess [Recovered/Resolved]
  - Multiple sclerosis relapse [Recovered/Resolved]
  - Vascular rupture [Recovered/Resolved]
  - Tendon disorder [Not Recovered/Not Resolved]
  - Impaired healing [Not Recovered/Not Resolved]

NARRATIVE: CASE EVENT DATE: 201509
